FAERS Safety Report 6613505-X (Version None)
Quarter: 2010Q1

REPORT INFORMATION
  Report Type: 
  Country: None (occurrence: None)
  Receive Date: 20100304
  Receipt Date: 20100226
  Transmission Date: 20100710
  Serious: Yes (Hospitalization)
  Sender: FDA-Public Use
  Company Number: JP-SANOFI-AVENTIS-2010SA009562

PATIENT
  Age: 62 Year
  Sex: Female
  Weight: 60 kg

DRUGS (25)
  1. CLEXANE [Suspect]
     Route: 058
     Dates: start: 20090813, end: 20090826
  2. CLEXANE [Suspect]
     Route: 058
     Dates: start: 20090813, end: 20090826
  3. ALFACALCIDOL [Concomitant]
     Route: 048
     Dates: start: 20090902
  4. ROSUVASTATIN CALCIUM [Concomitant]
     Route: 048
     Dates: start: 20090909
  5. OMEPRAL [Concomitant]
     Route: 048
     Dates: start: 20090902
  6. CLOSTRIDIUM BUTYRICUM [Concomitant]
     Route: 048
     Dates: start: 20090902
  7. BIOTIN [Concomitant]
     Route: 048
     Dates: start: 20090902
  8. CINAL [Concomitant]
     Route: 048
     Dates: start: 20090902
  9. FERROUS FUMARATE [Concomitant]
     Route: 048
     Dates: end: 20090820
  10. HYPEN [Concomitant]
     Route: 048
     Dates: start: 20090813, end: 20090819
  11. HYPEN [Concomitant]
     Route: 048
     Dates: start: 20090827, end: 20090828
  12. SELBEX [Concomitant]
     Route: 048
     Dates: start: 20090813, end: 20090819
  13. SELBEX [Concomitant]
     Route: 048
     Dates: start: 20090827, end: 20090828
  14. ADRENAL CORTICAL EXTRACT/CHONDROITIN SULFATE/SALICYLIC ACID [Concomitant]
     Dosage: ADEQUATE DOSE AS NEEDED
     Route: 062
     Dates: start: 20090814, end: 20090826
  15. SELTOUCH [Concomitant]
     Dosage: ADEQUATE DOSE, AS NEEDED
     Route: 062
     Dates: start: 20090814, end: 20090902
  16. ASPIRIN [Concomitant]
     Route: 048
     Dates: start: 20090828, end: 20090924
  17. DERMOVATE [Concomitant]
     Dosage: ADEQUATE DOSE, AS NEEDED
     Route: 062
     Dates: start: 20090826, end: 20090829
  18. MYSLEE [Concomitant]
     Route: 048
     Dates: start: 20090817
  19. CLARITIN [Concomitant]
     Route: 048
     Dates: start: 20090826, end: 20090827
  20. LOXOPROFEN SODIUM [Concomitant]
     Route: 048
     Dates: start: 20090829, end: 20090911
  21. LOXOPROFEN SODIUM [Concomitant]
     Route: 048
     Dates: start: 20090915
  22. MUCOSTA [Concomitant]
     Route: 048
     Dates: start: 20090829, end: 20090911
  23. MUCOSTA [Concomitant]
     Route: 048
     Dates: start: 20090915
  24. METHYCOBAL [Concomitant]
     Route: 048
     Dates: start: 20090825
  25. COLAC [Concomitant]
     Route: 048

REACTIONS (1)
  - POSTOPERATIVE WOUND INFECTION [None]
